FAERS Safety Report 4676812-6 (Version None)
Quarter: 2005Q2

REPORT INFORMATION
  Report Type: 
  Country: None (occurrence: None)
  Receive Date: 20050527
  Receipt Date: 20050302
  Transmission Date: 20051028
  Serious: Yes (Hospitalization, Disabling, Other)
  Sender: FDA-Public Use
  Company Number: US-MERCK-0503USA00579

PATIENT
  Age: 55 Year
  Sex: Male
  Weight: 115 kg

DRUGS (3)
  1. VIOXX [Suspect]
     Indication: ARTHRITIS
     Route: 048
     Dates: start: 20000729, end: 20020515
  2. VIOXX [Suspect]
     Route: 048
     Dates: start: 20000729, end: 20020515
  3. BISOPROLOL FUMARATE AND HYDROCHLOROTHIAZIDE [Concomitant]
     Route: 065

REACTIONS (8)
  - ACUTE MYOCARDIAL INFARCTION [None]
  - CORONARY ARTERY DISEASE [None]
  - EMOTIONAL DISTRESS [None]
  - HYPERTENSIVE CRISIS [None]
  - HYPOAESTHESIA [None]
  - LOWER GASTROINTESTINAL HAEMORRHAGE [None]
  - PRODUCTIVE COUGH [None]
  - SPINAL DISORDER [None]
